FAERS Safety Report 9052066 (Version 1)
Quarter: 2013Q1

REPORT INFORMATION
  Report Type: Spontaneous
  Country: FR (occurrence: FR)
  Receive Date: 20130206
  Receipt Date: 20130206
  Transmission Date: 20140127
  Serious: Yes (Hospitalization)
  Sender: FDA-Public Use
  Company Number: PHHY2013FR009848

PATIENT
  Age: 54 Year
  Sex: Male

DRUGS (11)
  1. TAREG [Suspect]
     Indication: HYPERTENSION
     Dosage: UNK UKN, UNK
     Dates: start: 20121127, end: 20121128
  2. VANCOMYCIN [Suspect]
     Dosage: 2 G, DAILY
     Route: 042
     Dates: start: 20121122, end: 20121126
  3. VANCOMYCIN [Suspect]
     Dosage: 3 G, DAILY
     Route: 042
     Dates: start: 20121127, end: 20121128
  4. TAZOCILLINE [Suspect]
     Dosage: 12 G, DAILY
     Route: 042
     Dates: start: 20121122, end: 20121128
  5. PLAVIX [Concomitant]
     Dosage: FROM A LONG TIME
     Route: 048
  6. KARDEGIC [Concomitant]
     Dosage: FROM A LONG TIME
     Route: 048
  7. TAHOR [Concomitant]
     Dosage: FROM A LONG TIME
     Route: 048
  8. ACTISKENAN [Concomitant]
     Dosage: UNK UKN, UNK
     Route: 048
     Dates: start: 20121127
  9. SKENAN [Concomitant]
     Dosage: UNK UKN, UNK
     Route: 048
  10. FORLAX [Concomitant]
     Dosage: UNK UKN, UNK
     Route: 048
  11. INSULINE ACTRAPID [Concomitant]

REACTIONS (1)
  - Toxic skin eruption [Recovered/Resolved]
